FAERS Safety Report 4741667-8 (Version None)
Quarter: 2005Q3

REPORT INFORMATION
  Report Type: 
  Country: None (occurrence: None)
  Receive Date: 20050801
  Receipt Date: 20050628
  Transmission Date: 20060218
  Serious: No
  Sender: FDA-Public Use
  Company Number: 2005PV000156

PATIENT
  Age: 63 Year
  Sex: Female
  Weight: 104.3273 kg

DRUGS (9)
  1. BYETTA [Suspect]
     Indication: DIABETES MELLITUS NON-INSULIN-DEPENDENT
     Dosage: 5 UG;BID;SC
     Route: 058
     Dates: start: 20050623
  2. ACTOS [Concomitant]
  3. FLEXERIL [Concomitant]
  4. DIOVAN ^NORVARTIS^ [Concomitant]
  5. BEXTRA [Concomitant]
  6. PLENDIL [Concomitant]
  7. LOVASTATIN [Concomitant]
  8. CYMBALTA [Concomitant]
  9. GLYBURIDE [Concomitant]

REACTIONS (5)
  - BLOOD GLUCOSE INCREASED [None]
  - DECREASED APPETITE [None]
  - FOOD AVERSION [None]
  - INJECTION SITE PAIN [None]
  - NAUSEA [None]
